FAERS Safety Report 5278807-0 (Version None)
Quarter: 2007Q1

REPORT INFORMATION
  Report Type: 
  Country: None (occurrence: None)
  Receive Date: 20070328
  Receipt Date: 20070314
  Transmission Date: 20070707
  Serious: Yes (Other)
  Sender: FDA-Public Use
  Company Number: US-ROCHE-475545

PATIENT
  Age: 34 Year
  Sex: Female
  Weight: 72.6 kg

DRUGS (1)
  1. ACCUTANE [Suspect]
     Dosage: DOSING REGIMEN 40 MG AM AND 20 MG PM.
     Route: 048
     Dates: start: 20060915, end: 20061219

REACTIONS (3)
  - BRONCHITIS [None]
  - COUGH [None]
  - ILL-DEFINED DISORDER [None]
